FAERS Safety Report 18509473 (Version 3)
Quarter: 2020Q4

REPORT INFORMATION
  Report Type: Spontaneous
  Country: US (occurrence: US)
  Receive Date: 20201117
  Receipt Date: 20201211
  Transmission Date: 20210114
  Serious: Yes (Hospitalization, Other)
  Sender: FDA-Public Use
  Company Number: US-CLOVIS ONCOLOGY-CLO-2020-002129

PATIENT
  Sex: Male

DRUGS (2)
  1. RUBRACA [Suspect]
     Active Substance: RUCAPARIB CAMSYLATE
     Indication: PROSTATE CANCER
     Dosage: 600 MG, BID
  2. RUBRACA [Suspect]
     Active Substance: RUCAPARIB CAMSYLATE
     Dosage: 300 MG, BID
     Route: 048
     Dates: start: 20201017

REACTIONS (7)
  - Platelet count decreased [Unknown]
  - Haemoglobin decreased [Unknown]
  - Blood pressure decreased [Unknown]
  - Atrial fibrillation [Unknown]
  - Head injury [Unknown]
  - Fall [Unknown]
  - Blood count abnormal [Unknown]

NARRATIVE: CASE EVENT DATE: 2020
